FAERS Safety Report 10399717 (Version 2)
Quarter: 2016Q1

REPORT INFORMATION
  Report Type: Spontaneous
  Country: FR (occurrence: FR)
  Receive Date: 20140821
  Receipt Date: 20160210
  Transmission Date: 20160525
  Serious: Yes (Hospitalization)
  Sender: FDA-Public Use
  Company Number: FR-BRISTOL-MYERS SQUIBB COMPANY-21308390

PATIENT
  Age: 91 Year
  Sex: Male

DRUGS (9)
  1. COUMADIN [Suspect]
     Active Substance: WARFARIN SODIUM
     Indication: ARRHYTHMIA
     Dosage: FORMULATION:COUMADINE 2 MG TABLET   DECREASED:1/4TH TAB/D
     Route: 048
     Dates: start: 20140623, end: 20140630
  2. LOXEN [Concomitant]
     Active Substance: NICARDIPINE HYDROCHLORIDE
     Indication: PRODUCT USED FOR UNKNOWN INDICATION
     Route: 065
  3. CEFTRIAXONE. [Concomitant]
     Active Substance: CEFTRIAXONE
     Indication: PRODUCT USED FOR UNKNOWN INDICATION
     Route: 065
  4. COUMADIN [Suspect]
     Active Substance: WARFARIN SODIUM
     Indication: ATRIAL FIBRILLATION
  5. DAKTARIN [Suspect]
     Active Substance: MICONAZOLE NITRATE
     Indication: ORAL FUNGAL INFECTION
     Dosage: 1 DF= 2% ORAL GEL APPLICATIONS
     Route: 048
     Dates: start: 20140623, end: 20140630
  6. PIPERACILLIN AND TAZOBACTAM [Concomitant]
     Active Substance: PIPERACILLIN SODIUM\TAZOBACTAM SODIUM
     Indication: PRODUCT USED FOR UNKNOWN INDICATION
     Route: 065
  7. XATRAL [Concomitant]
     Active Substance: ALFUZOSIN
     Indication: PRODUCT USED FOR UNKNOWN INDICATION
     Route: 065
  8. IPRATROPIUM BROMIDE. [Concomitant]
     Active Substance: IPRATROPIUM BROMIDE
     Indication: PRODUCT USED FOR UNKNOWN INDICATION
     Route: 065
  9. SALBUTAMOL [Concomitant]
     Active Substance: ALBUTEROL
     Indication: PRODUCT USED FOR UNKNOWN INDICATION
     Route: 065

REACTIONS (5)
  - Lung disorder [Unknown]
  - Off label use [Unknown]
  - Prothrombin level decreased [Recovered/Resolved]
  - Oral fungal infection [Unknown]
  - Overdose [Recovered/Resolved]

NARRATIVE: CASE EVENT DATE: 20140623
